FAERS Safety Report 7708369-7 (Version None)
Quarter: 2011Q3

REPORT INFORMATION
  Report Type: 
  Country: None (occurrence: None)
  Receive Date: 20110825
  Receipt Date: 20101210
  Transmission Date: 20111222
  Serious: No
  Sender: FDA-Public Use
  Company Number: US-BAYER-2010-009260

PATIENT
  Age: 21 Year
  Sex: Female

DRUGS (1)
  1. MIRENA [Suspect]
     Indication: CONTRACEPTION
     Dosage: 20 MCG/24HR, QD
     Route: 015
     Dates: start: 20100910, end: 20101210

REACTIONS (3)
  - SENSATION OF PRESSURE [None]
  - DEVICE EXPULSION [None]
  - PAIN [None]
